FAERS Safety Report 9332865 (Version 2)
Quarter: 2013Q4

REPORT INFORMATION
  Report Type: Spontaneous
  Country: US (occurrence: US)
  Receive Date: 20130606
  Receipt Date: 20131223
  Transmission Date: 20140711
  Serious: Yes (Death, Hospitalization)
  Sender: FDA-Public Use
  Company Number: US-B.I. PHARMACEUTICALS,INC./RIDGEFIELD-2013-BI-15769BP

PATIENT
  Sex: Male
  Weight: 127.74 kg

DRUGS (4)
  1. PRADAXA [Suspect]
     Indication: ANTICOAGULANT THERAPY
     Dates: start: 20111104, end: 20120103
  2. COREG [Concomitant]
  3. LASIX [Concomitant]
  4. LISINOPRIL [Concomitant]

REACTIONS (2)
  - Thalamus haemorrhage [Fatal]
  - Haemorrhagic stroke [Unknown]
